FAERS Safety Report 20024830 (Version 2)
Quarter: 2021Q4

REPORT INFORMATION
  Report Type: Spontaneous
  Country: DE (occurrence: DE)
  Receive Date: 20211102
  Receipt Date: 20211103
  Transmission Date: 20220303
  Serious: Yes (Hospitalization)
  Sender: FDA-Public Use
  Company Number: DE-ADRED-06186-01

PATIENT
  Age: 43 Year
  Sex: Female
  Weight: 40 kg

DRUGS (5)
  1. CISPLATIN [Suspect]
     Active Substance: CISPLATIN
     Indication: Product used for unknown indication
     Dosage: UNK, LETZTE 03102019
  2. PEMETREXED [Suspect]
     Active Substance: PEMETREXED
     Indication: Product used for unknown indication
     Dosage: UNK, LETZTE 03102019
  3. PEMBROLIZUMAB [Suspect]
     Active Substance: PEMBROLIZUMAB
     Indication: Product used for unknown indication
     Dosage: LETZTE 03102019
  4. PANTOPRAZOL                        /01263201/ [Concomitant]
     Dosage: 40 MILLIGRAM, QD (40 MG, 1-0-0-0)
  5. NOVAMIN                            /06276704/ [Concomitant]
     Dosage: 500 MILLIGRAM, QID (500 MG, 1-1-1-1)

REACTIONS (5)
  - Vomiting [Unknown]
  - Abdominal pain upper [Unknown]
  - Abdominal pain [Unknown]
  - Nausea [Unknown]
  - General physical health deterioration [Unknown]
